FAERS Safety Report 23841960 (Version 2)
Quarter: 2025Q2

REPORT INFORMATION
  Report Type: Spontaneous
  Country: FR (occurrence: FR)
  Receive Date: 20240510
  Receipt Date: 20250623
  Transmission Date: 20250716
  Serious: Yes (Hospitalization)
  Sender: MYLAN
  Company Number: None

PATIENT
  Age: 64 Year
  Sex: Female
  Weight: 67 kg

DRUGS (48)
  1. PREDNISONE [Suspect]
     Active Substance: PREDNISONE
     Indication: Psoriatic arthropathy
     Dosage: 5 MILLIGRAM, QD
     Dates: start: 20240126, end: 20240326
  2. PREDNISONE [Suspect]
     Active Substance: PREDNISONE
     Dosage: 5 MILLIGRAM, QD
     Route: 048
     Dates: start: 20240126, end: 20240326
  3. PREDNISONE [Suspect]
     Active Substance: PREDNISONE
     Dosage: 5 MILLIGRAM, QD
     Route: 048
     Dates: start: 20240126, end: 20240326
  4. PREDNISONE [Suspect]
     Active Substance: PREDNISONE
     Dosage: 5 MILLIGRAM, QD
     Dates: start: 20240126, end: 20240326
  5. BETAMETHASONE DIPROPIONATE\BETAMETHASONE SODIUM PHOSPHATE [Suspect]
     Active Substance: BETAMETHASONE DIPROPIONATE\BETAMETHASONE SODIUM PHOSPHATE
     Indication: Psoriatic arthropathy
     Dates: start: 20240201, end: 20240207
  6. BETAMETHASONE DIPROPIONATE\BETAMETHASONE SODIUM PHOSPHATE [Suspect]
     Active Substance: BETAMETHASONE DIPROPIONATE\BETAMETHASONE SODIUM PHOSPHATE
     Route: 014
     Dates: start: 20240201, end: 20240207
  7. BETAMETHASONE DIPROPIONATE\BETAMETHASONE SODIUM PHOSPHATE [Suspect]
     Active Substance: BETAMETHASONE DIPROPIONATE\BETAMETHASONE SODIUM PHOSPHATE
     Route: 014
     Dates: start: 20240201, end: 20240207
  8. BETAMETHASONE DIPROPIONATE\BETAMETHASONE SODIUM PHOSPHATE [Suspect]
     Active Substance: BETAMETHASONE DIPROPIONATE\BETAMETHASONE SODIUM PHOSPHATE
     Dates: start: 20240201, end: 20240207
  9. ACETAMINOPHEN [Concomitant]
     Active Substance: ACETAMINOPHEN
  10. ACETAMINOPHEN [Concomitant]
     Active Substance: ACETAMINOPHEN
     Route: 065
  11. ACETAMINOPHEN [Concomitant]
     Active Substance: ACETAMINOPHEN
     Route: 065
  12. ACETAMINOPHEN [Concomitant]
     Active Substance: ACETAMINOPHEN
  13. BETAMETHASONE VALERATE [Concomitant]
     Active Substance: BETAMETHASONE VALERATE
  14. BETAMETHASONE VALERATE [Concomitant]
     Active Substance: BETAMETHASONE VALERATE
     Route: 065
  15. BETAMETHASONE VALERATE [Concomitant]
     Active Substance: BETAMETHASONE VALERATE
     Route: 065
  16. BETAMETHASONE VALERATE [Concomitant]
     Active Substance: BETAMETHASONE VALERATE
  17. SITAGLIPTIN [Concomitant]
     Active Substance: SITAGLIPTIN
  18. SITAGLIPTIN [Concomitant]
     Active Substance: SITAGLIPTIN
     Route: 065
  19. SITAGLIPTIN [Concomitant]
     Active Substance: SITAGLIPTIN
     Route: 065
  20. SITAGLIPTIN [Concomitant]
     Active Substance: SITAGLIPTIN
  21. CHOLECALCIFEROL [Concomitant]
     Active Substance: CHOLECALCIFEROL
  22. CHOLECALCIFEROL [Concomitant]
     Active Substance: CHOLECALCIFEROL
     Route: 065
  23. CHOLECALCIFEROL [Concomitant]
     Active Substance: CHOLECALCIFEROL
     Route: 065
  24. CHOLECALCIFEROL [Concomitant]
     Active Substance: CHOLECALCIFEROL
  25. OPIUM [Concomitant]
     Active Substance: OPIUM
  26. OPIUM [Concomitant]
     Active Substance: OPIUM
     Route: 065
  27. OPIUM [Concomitant]
     Active Substance: OPIUM
     Route: 065
  28. OPIUM [Concomitant]
     Active Substance: OPIUM
  29. FOLIC ACID [Concomitant]
     Active Substance: FOLIC ACID
  30. FOLIC ACID [Concomitant]
     Active Substance: FOLIC ACID
     Route: 065
  31. FOLIC ACID [Concomitant]
     Active Substance: FOLIC ACID
     Route: 065
  32. FOLIC ACID [Concomitant]
     Active Substance: FOLIC ACID
  33. INSULIN GLARGINE [Concomitant]
     Active Substance: INSULIN GLARGINE
  34. INSULIN GLARGINE [Concomitant]
     Active Substance: INSULIN GLARGINE
     Route: 065
  35. INSULIN GLARGINE [Concomitant]
     Active Substance: INSULIN GLARGINE
     Route: 065
  36. INSULIN GLARGINE [Concomitant]
     Active Substance: INSULIN GLARGINE
  37. METFORMIN HYDROCHLORIDE [Concomitant]
     Active Substance: METFORMIN HYDROCHLORIDE
  38. METFORMIN HYDROCHLORIDE [Concomitant]
     Active Substance: METFORMIN HYDROCHLORIDE
     Route: 065
  39. METFORMIN HYDROCHLORIDE [Concomitant]
     Active Substance: METFORMIN HYDROCHLORIDE
     Route: 065
  40. METFORMIN HYDROCHLORIDE [Concomitant]
     Active Substance: METFORMIN HYDROCHLORIDE
  41. SIMVASTATIN [Concomitant]
     Active Substance: SIMVASTATIN
  42. SIMVASTATIN [Concomitant]
     Active Substance: SIMVASTATIN
     Route: 065
  43. SIMVASTATIN [Concomitant]
     Active Substance: SIMVASTATIN
     Route: 065
  44. SIMVASTATIN [Concomitant]
     Active Substance: SIMVASTATIN
  45. REPAGLINIDE [Concomitant]
     Active Substance: REPAGLINIDE
  46. REPAGLINIDE [Concomitant]
     Active Substance: REPAGLINIDE
     Route: 065
  47. REPAGLINIDE [Concomitant]
     Active Substance: REPAGLINIDE
     Route: 065
  48. REPAGLINIDE [Concomitant]
     Active Substance: REPAGLINIDE

REACTIONS (2)
  - Anaemia [Recovered/Resolved]
  - Lung disorder [Recovered/Resolved]

NARRATIVE: CASE EVENT DATE: 20240325
